FAERS Safety Report 20533019 (Version 2)
Quarter: 2022Q1

REPORT INFORMATION
  Report Type: Report from Study
  Country: US (occurrence: US)
  Receive Date: 20220301
  Receipt Date: 20220328
  Transmission Date: 20220423
  Serious: Yes (Hospitalization)
  Sender: FDA-Public Use
  Company Number: US-PFIZER INC-202200293003

PATIENT
  Age: 79 Year
  Sex: Male
  Weight: 63.129 kg

DRUGS (1)
  1. SUTENT [Suspect]
     Active Substance: SUNITINIB MALATE
     Dosage: 50.0 MG/DAY
     Route: 048

REACTIONS (1)
  - Colitis [Recovered/Resolved]
